FAERS Safety Report 4377753-4 (Version None)
Quarter: 2004Q2

REPORT INFORMATION
  Report Type: 
  Country: None (occurrence: None)
  Receive Date: 20040615
  Receipt Date: 20040421
  Transmission Date: 20050107
  Serious: Yes (Disabling)
  Sender: FDA-Public Use
  Company Number: US-MERCK-0404USA01920

PATIENT
  Age: 73 Year
  Sex: Male
  Weight: 94 kg

DRUGS (14)
  1. ASPIRIN [Concomitant]
     Route: 065
  2. ZEBETA [Concomitant]
     Route: 065
  3. CELEXA [Concomitant]
     Route: 065
  4. KLONOPIN [Concomitant]
     Route: 065
  5. DEPAKOTE [Concomitant]
     Route: 065
  6. ZETIA [Concomitant]
     Route: 065
  7. PROSCAR [Suspect]
     Indication: BENIGN PROSTATIC HYPERPLASIA
     Route: 048
     Dates: start: 20030101
  8. PROSCAR [Suspect]
     Indication: PROSTATITIS
     Route: 048
     Dates: start: 20030101
  9. FOLIC ACID [Concomitant]
     Route: 065
  10. REMERON [Concomitant]
     Route: 065
  11. PRILOSEC [Concomitant]
     Route: 065
  12. ACCUPRIL [Concomitant]
     Route: 065
  13. FLOMAX [Concomitant]
     Route: 065
  14. AMBIEN [Concomitant]
     Route: 065

REACTIONS (1)
  - VISUAL ACUITY REDUCED [None]
